FAERS Safety Report 21135382 (Version 2)
Quarter: 2022Q4

REPORT INFORMATION
  Report Type: Report from Study
  Country: US (occurrence: US)
  Receive Date: 20220727
  Receipt Date: 20221001
  Transmission Date: 20230112
  Serious: Yes (Other)
  Sender: FDA-Public Use
  Company Number: US-ABBVIE-22K-163-4480623-00

PATIENT
  Sex: Male

DRUGS (1)
  1. HUMIRA [Suspect]
     Active Substance: ADALIMUMAB
     Indication: Crohn^s disease
     Route: 058

REACTIONS (15)
  - Hepatic cirrhosis [Unknown]
  - Fall [Unknown]
  - Hepatic steatosis [Unknown]
  - Prostate cancer [Not Recovered/Not Resolved]
  - Neuropathy peripheral [Not Recovered/Not Resolved]
  - Parkinson^s disease [Unknown]
  - Diabetes mellitus [Not Recovered/Not Resolved]
  - Urinary tract infection [Unknown]
  - Oral pain [Unknown]
  - Blood glucose decreased [Unknown]
  - Chronic obstructive pulmonary disease [Unknown]
  - Balance disorder [Unknown]
  - Ephelides [Unknown]
  - Gait disturbance [Unknown]
  - Post-traumatic stress disorder [Unknown]
